FAERS Safety Report 6004997-8 (Version None)
Quarter: 2008Q4

REPORT INFORMATION
  Report Type: 
  Country: None (occurrence: None)
  Receive Date: 20081216
  Receipt Date: 20080617
  Transmission Date: 20090506
  Serious: No
  Sender: FDA-Public Use
  Company Number: US-BAUSCH-2008BL002697

PATIENT
  Age: 50 Year
  Sex: Female
  Weight: 61 kg

DRUGS (14)
  1. TOBRAMYCIN [Suspect]
     Indication: DACRYOSTENOSIS ACQUIRED
     Route: 047
     Dates: start: 20080527, end: 20080602
  2. TOBRAMYCIN [Suspect]
     Indication: EYE INFECTION
     Route: 047
     Dates: start: 20080527, end: 20080602
  3. TOBRAMYCIN [Suspect]
     Indication: EYELID OEDEMA
     Route: 047
     Dates: start: 20080527, end: 20080602
  4. TOBRAMYCIN [Suspect]
     Indication: ERYTHEMA OF EYELID
     Route: 047
     Dates: start: 20080527, end: 20080602
  5. TOBRAMYCIN [Suspect]
     Route: 047
     Dates: start: 20080527, end: 20080602
  6. TOBRAMYCIN [Suspect]
     Route: 047
     Dates: start: 20080614, end: 20080616
  7. TOBRAMYCIN [Suspect]
     Route: 047
     Dates: start: 20080614, end: 20080616
  8. TOBRAMYCIN [Suspect]
     Route: 047
     Dates: start: 20080614, end: 20080616
  9. TOBRAMYCIN [Suspect]
     Route: 047
     Dates: start: 20080614, end: 20080616
  10. TOBRAMYCIN [Suspect]
     Route: 047
     Dates: start: 20080614, end: 20080616
  11. ZOCOR [Concomitant]
     Indication: BLOOD CHOLESTEROL INCREASED
  12. ATENOLOL [Concomitant]
     Indication: HYPERTENSION
  13. CELEXA [Concomitant]
  14. DAPSONE [Concomitant]
     Indication: DERMATITIS HERPETIFORMIS

REACTIONS (1)
  - DRUG INEFFECTIVE [None]
